FAERS Safety Report 5478211-6 (Version None)
Quarter: 2007Q4

REPORT INFORMATION
  Report Type: 
  Country: None (occurrence: None)
  Receive Date: 20071005
  Receipt Date: 20070925
  Transmission Date: 20080405
  Serious: Yes (Hospitalization, Other)
  Sender: FDA-Public Use
  Company Number: US-AVENTIS-200715710US

PATIENT
  Sex: Female
  Weight: 81.81 kg

DRUGS (12)
  1. LOVENOX [Suspect]
     Indication: ATRIAL FIBRILLATION
     Dates: start: 20040101, end: 20070110
  2. LOVENOX [Suspect]
  3. LOVENOX [Suspect]
     Route: 051
     Dates: start: 20070123
  4. LOVENOX [Suspect]
     Dates: start: 20040101, end: 20070110
  5. LOVENOX [Suspect]
  6. LOVENOX [Suspect]
     Route: 051
     Dates: start: 20070123
  7. BENICAR [Concomitant]
     Indication: BLOOD PRESSURE
     Dates: start: 20000101
  8. TOPROL-XL [Concomitant]
     Dates: start: 20000101
  9. RYTHMOL                            /00546302/ [Concomitant]
     Dates: start: 20000101
  10. RYTHMOL                            /00546302/ [Concomitant]
     Dates: start: 20000101
  11. LIPITOR [Concomitant]
     Dates: start: 20000101
  12. NEXIUM [Concomitant]
     Dates: start: 20040101

REACTIONS (22)
  - APPENDICITIS PERFORATED [None]
  - ATRIAL FIBRILLATION [None]
  - CELLULITIS [None]
  - CONTUSION [None]
  - DERMATITIS [None]
  - DRUG INEFFECTIVE [None]
  - EPISTAXIS [None]
  - HAEMORRHAGE [None]
  - HEADACHE [None]
  - HEMIPARESIS [None]
  - HYPOAESTHESIA [None]
  - INJECTION SITE NODULE [None]
  - LARYNGEAL DISORDER [None]
  - MUSCULAR WEAKNESS [None]
  - PARAESTHESIA ORAL [None]
  - PERITONITIS [None]
  - SEPSIS [None]
  - SKIN DISCOLOURATION [None]
  - SKIN EXFOLIATION [None]
  - TRANSIENT ISCHAEMIC ATTACK [None]
  - TREMOR [None]
  - UMBILICAL HERNIA [None]
